FAERS Safety Report 6955069-7 (Version None)
Quarter: 2010Q3

REPORT INFORMATION
  Report Type: 
  Country: None (occurrence: None)
  Receive Date: 20100817
  Receipt Date: 20090917
  Transmission Date: 20110219
  Serious: No
  Sender: FDA-Public Use
  Company Number: 20097415

PATIENT
  Sex: Female

DRUGS (1)
  1. LIORESAL [Suspect]
     Indication: MUSCLE SPASTICITY
     Dosage: 30 MCG, DAILY, INTRATHECAL - SEE B5
     Route: 037

REACTIONS (3)
  - DRUG INEFFECTIVE [None]
  - MUSCLE TIGHTNESS [None]
  - PRURITUS [None]
